FAERS Safety Report 7361426-X (Version None)
Quarter: 2011Q1

REPORT INFORMATION
  Report Type: 
  Country: None (occurrence: None)
  Receive Date: 20110310
  Receipt Date: 20110225
  Transmission Date: 20110831
  Serious: Yes (Other)
  Sender: FDA-Public Use
  Company Number: 004292

PATIENT
  Sex: Female
  Weight: 107.3 kg

DRUGS (8)
  1. ENALAPRIL MALEATE [Concomitant]
  2. LASIX [Concomitant]
  3. PRILOSEC [Concomitant]
  4. ATENOLOL [Concomitant]
  5. PREDNISONE [Concomitant]
  6. FLUOXETINE [Concomitant]
  7. METHOTREXATE [Concomitant]
  8. CERTOLIZUMAB PEGOL [Suspect]
     Indication: RHEUMATOID ARTHRITIS
     Dosage: (200 MG 1X/2 WEEKS, 200 MG : SCHEDULE OF ADMINISTRATION NOT PROVIDED - TOTAL DOSES: 13 SUBCUTANEOUS)
     Route: 058
     Dates: start: 20090513, end: 20091112

REACTIONS (3)
  - BREAST CANCER FEMALE [None]
  - MASTITIS [None]
  - RADIATION INJURY [None]
